FAERS Safety Report 6633250-4 (Version None)
Quarter: 2010Q1

REPORT INFORMATION
  Report Type: 
  Country: None (occurrence: None)
  Receive Date: 20100312
  Receipt Date: 20100301
  Transmission Date: 20100710
  Serious: Yes (Other)
  Sender: FDA-Public Use
  Company Number: DE-GENENTECH-295691

PATIENT
  Sex: Female
  Weight: 65 kg

DRUGS (5)
  1. XOLAIR [Suspect]
     Indication: URTICARIA CHRONIC
     Dosage: 300 MG, 1/MONTH
     Route: 058
     Dates: start: 20080402
  2. BERODUAL [Concomitant]
     Indication: DRUG USE FOR UNKNOWN INDICATION
  3. IBUPROFEN [Concomitant]
     Indication: DRUG USE FOR UNKNOWN INDICATION
  4. JODID [Concomitant]
     Indication: DRUG USE FOR UNKNOWN INDICATION
  5. BECLOMETASON INHAL.AER. [Concomitant]
     Indication: DRUG USE FOR UNKNOWN INDICATION

REACTIONS (1)
  - AMENORRHOEA [None]
